FAERS Safety Report 9716401 (Version 1)
Quarter: 2013Q4

REPORT INFORMATION
  Report Type: Spontaneous
  Country: US (occurrence: None)
  Receive Date: 20131126
  Receipt Date: 20131126
  Transmission Date: 20140711
  Serious: No
  Sender: FDA-Public Use
  Company Number: None

PATIENT
  Age: 56 Year
  Sex: Male
  Weight: 142.8 kg

DRUGS (2)
  1. CARBOPLATIN [Suspect]
     Dates: end: 20131118
  2. PACLITAXEL [Suspect]
     Dates: end: 20131118

REACTIONS (1)
  - Neuropathy peripheral [None]
